FAERS Safety Report 6644493-8 (Version None)
Quarter: 2010Q1

REPORT INFORMATION
  Report Type: 
  Country: None (occurrence: None)
  Receive Date: 20100322
  Receipt Date: 20100311
  Transmission Date: 20100710
  Serious: Yes (Other)
  Sender: FDA-Public Use
  Company Number: JP-JNJFOC-20100305503

PATIENT
  Age: 41 Year
  Sex: Female

DRUGS (2)
  1. REMICADE [Suspect]
     Indication: RHEUMATOID ARTHRITIS
     Dosage: 3 INFUSIONS ON UNREPORTED DATES
     Route: 042
  2. REMICADE [Suspect]
     Dosage: 3 DOSES ON UNKNOWN DATES
     Route: 042

REACTIONS (1)
  - SYSTEMIC LUPUS ERYTHEMATOSUS [None]
